FAERS Safety Report 16961487 (Version 1)
Quarter: 2019Q4

REPORT INFORMATION
  Report Type: Spontaneous
  Country: US (occurrence: US)
  Receive Date: 20191024
  Receipt Date: 20191024
  Transmission Date: 20200122
  Serious: Yes (Life-Threatening, Disabling, Other)
  Sender: FDA-Public Use
  Company Number: None

PATIENT
  Age: 45 Year
  Sex: Male
  Weight: 67.5 kg

DRUGS (5)
  1. AJOVY [Suspect]
     Active Substance: FREMANEZUMAB-VFRM
     Indication: MIGRAINE PROPHYLAXIS
     Route: 042
     Dates: start: 20190213, end: 20190213
  2. SYMBICORT [Concomitant]
     Active Substance: BUDESONIDE\FORMOTEROL FUMARATE DIHYDRATE
  3. CLARITIN [Concomitant]
     Active Substance: LORATADINE
  4. MULTIVITAMIN [Concomitant]
     Active Substance: VITAMINS
  5. ALLEGA 180 MG [Concomitant]

REACTIONS (2)
  - Anaphylactic reaction [None]
  - Bronchospasm [None]

NARRATIVE: CASE EVENT DATE: 20190329
